FAERS Safety Report 18806993 (Version 1)
Quarter: 2021Q1

REPORT INFORMATION
  Report Type: Spontaneous
  Country: US (occurrence: US)
  Receive Date: 20210128
  Receipt Date: 20210128
  Transmission Date: 20210419
  Serious: No
  Sender: FDA-Public Use
  Company Number: US-ENDO PHARMACEUTICALS INC-2019-111025

PATIENT
  Sex: Female

DRUGS (1)
  1. RHEUMATREX [Suspect]
     Active Substance: METHOTREXATE SODIUM
     Indication: ARTHRITIS ALLERGIC
     Dosage: 4 DF, WEEKLY
     Route: 048

REACTIONS (2)
  - Nausea [Unknown]
  - Treatment noncompliance [Unknown]
